FAERS Safety Report 23085287 (Version 1)
Quarter: 2023Q4

REPORT INFORMATION
  Report Type: Spontaneous
  Country: US (occurrence: None)
  Receive Date: 20231019
  Receipt Date: 20231019
  Transmission Date: 20240109
  Serious: Yes (Other)
  Sender: FDA-Public Use
  Company Number: None

PATIENT
  Age: 49 Year
  Sex: Female

DRUGS (5)
  1. TEZSPIRE [Suspect]
     Active Substance: TEZEPELUMAB-EKKO
     Indication: Asthma
     Route: 058
     Dates: start: 20230922
  2. ACETYLCYST POW [Concomitant]
  3. ALBUTEROL [Concomitant]
     Active Substance: ALBUTEROL
  4. IBUPROFEN [Concomitant]
     Active Substance: IBUPROFEN
  5. SINGULAIR [Concomitant]
     Active Substance: MONTELUKAST SODIUM

REACTIONS (9)
  - Internal hernia [None]
  - Rash [None]
  - Discomfort [None]
  - Loss of personal independence in daily activities [None]
  - Headache [None]
  - Nausea [None]
  - Hypoaesthesia [None]
  - Facial pain [None]
  - Pain in jaw [None]

NARRATIVE: CASE EVENT DATE: 20231009
